FAERS Safety Report 5818214-2 (Version None)
Quarter: 2008Q3

REPORT INFORMATION
  Report Type: 
  Country: None (occurrence: None)
  Receive Date: 20080716
  Receipt Date: 20080703
  Transmission Date: 20090109
  Serious: No
  Sender: FDA-Public Use
  Company Number: 2008-180296-NL

PATIENT
  Sex: Male

DRUGS (6)
  1. MIRTAZAPINE [Suspect]
     Dosage: 15 MG
     Dates: start: 20071227, end: 20080117
  2. HEPARIN CALCIUM [Concomitant]
  3. MAGNESIUM ASPARTATE [Concomitant]
  4. METRONIDAZOLE HCL [Concomitant]
  5. VITAMIN D3 [Concomitant]
  6. OXYCODONE HCL [Concomitant]

REACTIONS (1)
  - TACHYCARDIA [None]
